FAERS Safety Report 11622924 (Version 1)
Quarter: 2015Q4

REPORT INFORMATION
  Report Type: Spontaneous
  Country: SE (occurrence: SE)
  Receive Date: 20151013
  Receipt Date: 20151013
  Transmission Date: 20160304
  Serious: Yes (Other)
  Sender: FDA-Public Use
  Company Number: SE-AUROBINDO-AUR-APL-2015-09151

PATIENT
  Age: 29 Year
  Sex: Female

DRUGS (1)
  1. FLUCONAZOLE AUROBINDO HARD CAPSULES 150MG [Suspect]
     Active Substance: FLUCONAZOLE
     Indication: PRODUCT USED FOR UNKNOWN INDICATION
     Dosage: 150 MG, UNK
     Route: 065

REACTIONS (2)
  - Urticaria [Recovered/Resolved]
  - Rash [Recovered/Resolved]
